FAERS Safety Report 5117969-2 (Version None)
Quarter: 2006Q3

REPORT INFORMATION
  Report Type: 
  Country: None (occurrence: None)
  Receive Date: 20060926
  Receipt Date: 20060912
  Transmission Date: 20061208
  Serious: Yes (Death, Life-Threatening, Hospitalization)
  Sender: FDA-Public Use
  Company Number: 2005EU000419

PATIENT
  Age: 62 Year
  Sex: Female
  Weight: 83 kg

DRUGS (7)
  1. FK506(TACROLIMUS) CAPSULES [Suspect]
     Indication: LIVER TRANSPLANT
     Dosage: SEE IMAGE
     Route: 048
     Dates: start: 20041212, end: 20041212
  2. FK506(TACROLIMUS) CAPSULES [Suspect]
     Indication: LIVER TRANSPLANT
     Dosage: SEE IMAGE
     Route: 048
     Dates: start: 20041213, end: 20041221
  3. FK506(TACROLIMUS) CAPSULES [Suspect]
     Indication: LIVER TRANSPLANT
     Dosage: SEE IMAGE
     Route: 048
     Dates: start: 20041222, end: 20041225
  4. FK506(TACROLIMUS) CAPSULES [Suspect]
     Indication: LIVER TRANSPLANT
     Dosage: SEE IMAGE
     Route: 048
     Dates: start: 20041226, end: 20050131
  5. FK506(TACROLIMUS) CAPSULES [Suspect]
     Indication: LIVER TRANSPLANT
     Dosage: SEE IMAGE
     Route: 048
     Dates: start: 20050201
  6. PREDNISONE TAB [Suspect]
     Indication: LIVER TRANSPLANT
     Dosage: 10 MG, QOD, IV NOS
     Route: 042
     Dates: start: 20041211
  7. CELLCEPT [Suspect]
     Indication: LIVER TRANSPLANT
     Dosage: 1 G, UNKNOWN/D, ORAL
     Route: 048
     Dates: start: 20050201

REACTIONS (12)
  - CANDIDIASIS [None]
  - CLOSTRIDIUM COLITIS [None]
  - DISEASE RECURRENCE [None]
  - ENTEROCOCCAL INFECTION [None]
  - HAEMODIALYSIS [None]
  - INFECTION [None]
  - MULTI-ORGAN FAILURE [None]
  - NEPHROPATHY TOXIC [None]
  - PSEUDOMONAS INFECTION [None]
  - RENAL FAILURE [None]
  - SEPSIS [None]
  - THERAPY NON-RESPONDER [None]
